FAERS Safety Report 7203359-5 (Version None)
Quarter: 2010Q4

REPORT INFORMATION
  Report Type: 
  Country: None (occurrence: None)
  Receive Date: 20101216
  Receipt Date: 20101210
  Transmission Date: 20110411
  Serious: Yes (Other)
  Sender: FDA-Public Use
  Company Number: CTI_01272_2010

PATIENT
  Sex: Female

DRUGS (4)
  1. MEIACT (MEIACT MS) (NOT SPECIFIED) [Suspect]
     Indication: BACTERIAL INFECTION
     Dosage: (300 MG ORAL)
     Route: 048
     Dates: start: 20100219, end: 20100223
  2. CETIRIZINE HYDROCHLORIDE [Concomitant]
  3. ACETAMINOPHEN [Concomitant]
  4. L-CARBOCISTEINE [Concomitant]

REACTIONS (1)
  - ANAPHYLACTOID REACTION [None]
